FAERS Safety Report 23990836 (Version 2)
Quarter: 2025Q1

REPORT INFORMATION
  Report Type: Spontaneous
  Country: US (occurrence: US)
  Receive Date: 20240619
  Receipt Date: 20250106
  Transmission Date: 20250409
  Serious: Yes (Other)
  Sender: BRISTOL-MYERS SQUIBB COMPANY
  Company Number: US-BRISTOL-MYERS SQUIBB COMPANY-2024-095639

PATIENT
  Age: 82 Year
  Sex: Female
  Weight: 75.3 kg

DRUGS (1)
  1. ORENCIA [Suspect]
     Active Substance: ABATACEPT
     Indication: Rheumatoid arthritis
     Dosage: DOSE : 125MG;     FREQ : ONCE WEEKLY
     Route: 058
     Dates: start: 202109

REACTIONS (4)
  - Device deployment issue [Unknown]
  - Device delivery system issue [Unknown]
  - Device operational issue [Unknown]
  - Device safety feature issue [Unknown]

NARRATIVE: CASE EVENT DATE: 20240611
